FAERS Safety Report 14599860 (Version 1)
Quarter: 2018Q1

REPORT INFORMATION
  Report Type: Spontaneous
  Country: IT (occurrence: IT)
  Receive Date: 20180305
  Receipt Date: 20180305
  Transmission Date: 20180509
  Serious: Yes (Hospitalization)
  Sender: FDA-Public Use
  Company Number: IT-TEVA-2018-IT-862308

PATIENT
  Age: 79 Year
  Sex: Female

DRUGS (3)
  1. ALLOPURINOL. [Suspect]
     Active Substance: ALLOPURINOL
     Indication: GOUT
     Route: 048
     Dates: start: 20170809, end: 20170826
  2. ASACOL [Suspect]
     Active Substance: MESALAMINE
     Indication: DIARRHOEA
     Route: 048
     Dates: start: 20170809, end: 20170826
  3. UNIDROX 600 MG FILM-COATED TABLETS [Suspect]
     Active Substance: PRULIFLOXACIN
     Indication: URINARY TRACT INFECTION
     Route: 048
     Dates: start: 20170824, end: 20170828

REACTIONS (1)
  - Skin reaction [Recovered/Resolved]

NARRATIVE: CASE EVENT DATE: 20170826
